FAERS Safety Report 10339741 (Version 1)
Quarter: 2014Q3

REPORT INFORMATION
  Report Type: Spontaneous
  Country: IT (occurrence: IT)
  Receive Date: 20140724
  Receipt Date: 20140724
  Transmission Date: 20150326
  Serious: Yes (Hospitalization)
  Sender: FDA-Public Use
  Company Number: IT-GLAXOSMITHKLINE-B1016568A

PATIENT
  Age: 42 Year
  Sex: Female

DRUGS (4)
  1. TRANQUIRIT [Suspect]
     Active Substance: DIAZEPAM
     Indication: DRUG ABUSE
     Dosage: 10ML PER DAY
     Route: 048
     Dates: start: 20140217
  2. FLUOXEREN [Suspect]
     Active Substance: FLUOXETINE HYDROCHLORIDE
     Indication: DRUG ABUSE
     Dosage: 13UNIT PER DAY
     Route: 048
     Dates: start: 20140217
  3. LAMICTAL [Suspect]
     Active Substance: LAMOTRIGINE
     Indication: DRUG ABUSE
     Dosage: 14UNIT PER DAY
     Route: 048
     Dates: start: 20140217
  4. EN [Suspect]
     Active Substance: DELORAZEPAM
     Indication: DRUG ABUSE
     Dosage: 10UNIT PER DAY
     Route: 048
     Dates: start: 20140217

REACTIONS (2)
  - Drug abuse [Unknown]
  - Psychomotor hyperactivity [Unknown]

NARRATIVE: CASE EVENT DATE: 20140217
